FAERS Safety Report 13659109 (Version 1)
Quarter: 2017Q2

REPORT INFORMATION
  Report Type: Spontaneous
  Country: US (occurrence: US)
  Receive Date: 20170615
  Receipt Date: 20170615
  Transmission Date: 20170830
  Serious: Yes (Hospitalization)
  Sender: FDA-Public Use
  Company Number: None

PATIENT
  Age: 59 Year
  Sex: Female
  Weight: 95.48 kg

DRUGS (1)
  1. BRENTUXIMAB [Suspect]
     Active Substance: BRENTUXIMAB VEDOTIN
     Indication: HODGKIN^S DISEASE
     Route: 042
     Dates: start: 20170518, end: 20170518

REACTIONS (5)
  - Hepatic enzyme increased [None]
  - Fatigue [None]
  - Transaminases increased [None]
  - Dyspnoea [None]
  - Respiratory depression [None]

NARRATIVE: CASE EVENT DATE: 20170615
